FAERS Safety Report 11201786 (Version 3)
Quarter: 2015Q4

REPORT INFORMATION
  Report Type: Spontaneous
  Country: US (occurrence: US)
  Receive Date: 20150619
  Receipt Date: 20151214
  Transmission Date: 20160304
  Serious: Yes (Death, Other)
  Sender: FDA-Public Use
  Company Number: US-JNJFOC-20150610287

PATIENT
  Age: 84 Year
  Sex: Female

DRUGS (4)
  1. XARELTO [Suspect]
     Active Substance: RIVAROXABAN
     Indication: CEREBROVASCULAR ACCIDENT PROPHYLAXIS
     Route: 048
     Dates: start: 20130522, end: 20130608
  2. XARELTO [Suspect]
     Active Substance: RIVAROXABAN
     Indication: ATRIAL FIBRILLATION
     Route: 048
     Dates: start: 20130522, end: 20130608
  3. RISPERIDONE. [Concomitant]
     Active Substance: RISPERIDONE
     Route: 065
  4. LORAZEPAM. [Concomitant]
     Active Substance: LORAZEPAM
     Route: 065

REACTIONS (4)
  - Cerebrovascular accident [Fatal]
  - Haemorrhage [Unknown]
  - Epistaxis [Unknown]
  - Ear haemorrhage [Unknown]

NARRATIVE: CASE EVENT DATE: 201306
